FAERS Safety Report 20885854 (Version 3)
Quarter: 2022Q3

REPORT INFORMATION
  Report Type: Report from Study
  Country: US (occurrence: US)
  Receive Date: 20220527
  Receipt Date: 20220816
  Transmission Date: 20221027
  Serious: Yes (Hospitalization)
  Sender: FDA-Public Use
  Company Number: US-NOVARTISPH-NVSC2022US121191

PATIENT
  Sex: Male

DRUGS (2)
  1. TREPROSTINIL [Suspect]
     Active Substance: TREPROSTINIL
     Indication: Pulmonary arterial hypertension
     Dosage: 25.5 NG/KG/MIN, CONT
     Route: 042
     Dates: start: 20220412
  2. TREPROSTINIL [Suspect]
     Active Substance: TREPROSTINIL
     Dosage: 25.5 NG/KG/MIN, CONT
     Route: 042
     Dates: start: 202204

REACTIONS (3)
  - Hypervolaemia [Unknown]
  - Dyspnoea [Unknown]
  - Diarrhoea [Unknown]
